FAERS Safety Report 12216000 (Version 1)
Quarter: 2016Q1

REPORT INFORMATION
  Report Type: Spontaneous
  Country: FR (occurrence: FR)
  Receive Date: 20160329
  Receipt Date: 20160329
  Transmission Date: 20160526
  Serious: Yes (Other)
  Sender: FDA-Public Use
  Company Number: FR-HOSPIRA-3216668

PATIENT
  Age: 62 Year
  Sex: Male

DRUGS (25)
  1. MABTHERA [Suspect]
     Active Substance: RITUXIMAB
     Indication: LYMPHOMA
     Dosage: CYCLE 2
     Route: 042
     Dates: start: 20150706, end: 20150706
  2. MABTHERA [Suspect]
     Active Substance: RITUXIMAB
     Indication: LYMPHOMA
     Dosage: MAINTENANCE TREATMENT
     Route: 058
     Dates: start: 20151023, end: 20151023
  3. DOXORUBICINE TEVA [Suspect]
     Active Substance: DOXORUBICIN
     Indication: LYMPHOMA
     Dosage: CYCLE 3
     Route: 042
     Dates: start: 20150724, end: 20150724
  4. DOXORUBICINE TEVA [Suspect]
     Active Substance: DOXORUBICIN
     Indication: LYMPHOMA
     Dosage: CYCLE 5
     Route: 042
     Dates: start: 20150914, end: 20150914
  5. MABTHERA [Suspect]
     Active Substance: RITUXIMAB
     Indication: LYMPHOMA
     Dosage: CYCLE 3
     Route: 042
     Dates: start: 20150724, end: 20150724
  6. MABTHERA [Suspect]
     Active Substance: RITUXIMAB
     Indication: LYMPHOMA
     Dosage: CYCLE 4
     Route: 042
     Dates: start: 20150819, end: 20150819
  7. MABTHERA [Suspect]
     Active Substance: RITUXIMAB
     Indication: LYMPHOMA
     Dosage: MAINTENANCE TREATMENT
     Route: 058
     Dates: start: 20160212, end: 20160212
  8. CORTANCYL [Concomitant]
     Active Substance: PREDNISONE
     Indication: LYMPHOMA
     Dosage: D1 TO D5
     Route: 042
     Dates: start: 20150522, end: 20150522
  9. ENDOXAN                            /00021101/ [Suspect]
     Active Substance: CYCLOPHOSPHAMIDE
     Indication: LYMPHOMA
     Dosage: CYCLE 4
     Route: 042
     Dates: start: 20150819, end: 20150819
  10. VINCRISTINE HOSPIRA [Suspect]
     Active Substance: VINCRISTINE
     Indication: LYMPHOMA
     Dosage: CYCLE 3
     Route: 042
     Dates: start: 20150724, end: 20150724
  11. DOXORUBICINE TEVA [Suspect]
     Active Substance: DOXORUBICIN
     Indication: LYMPHOMA
     Dosage: CYCLE 1
     Route: 042
     Dates: start: 20150523, end: 20150523
  12. MABTHERA [Suspect]
     Active Substance: RITUXIMAB
     Indication: LYMPHOMA
     Dosage: CYCLE 1 DAY 1
     Route: 042
     Dates: start: 20150522, end: 20150522
  13. MABTHERA [Suspect]
     Active Substance: RITUXIMAB
     Indication: LYMPHOMA
     Dosage: MAINTENANCE TREATMENT
     Route: 058
     Dates: start: 20151218, end: 20151218
  14. VINCRISTINE HOSPIRA [Suspect]
     Active Substance: VINCRISTINE
     Indication: LYMPHOMA
     Dosage: CYCLE 4
     Route: 042
     Dates: start: 20150819, end: 20150819
  15. VINCRISTINE HOSPIRA [Suspect]
     Active Substance: VINCRISTINE
     Indication: LYMPHOMA
     Dosage: CYCLE 5
     Route: 042
     Dates: start: 20150914, end: 20150914
  16. MABTHERA [Suspect]
     Active Substance: RITUXIMAB
     Indication: LYMPHOMA
     Dosage: CYCLE 5
     Route: 042
     Dates: start: 20150914, end: 20150914
  17. ENDOXAN                            /00021101/ [Suspect]
     Active Substance: CYCLOPHOSPHAMIDE
     Indication: LYMPHOMA
     Dosage: CYCLE 1
     Route: 042
     Dates: start: 20150523, end: 20150523
  18. DOXORUBICINE TEVA [Suspect]
     Active Substance: DOXORUBICIN
     Indication: LYMPHOMA
     Dosage: CYCLE 2
     Route: 042
     Dates: start: 20150706, end: 20150706
  19. ENDOXAN                            /00021101/ [Suspect]
     Active Substance: CYCLOPHOSPHAMIDE
     Indication: LYMPHOMA
     Dosage: CYCLE 2
     Route: 042
     Dates: start: 20150706, end: 20150706
  20. VINCRISTINE HOSPIRA [Suspect]
     Active Substance: VINCRISTINE
     Indication: LYMPHOMA
     Dosage: CYCLE 1 DAY 2
     Route: 042
     Dates: start: 20150523, end: 20150523
  21. VINCRISTINE HOSPIRA [Suspect]
     Active Substance: VINCRISTINE
     Indication: LYMPHOMA
     Dosage: CYCLE 2
     Route: 042
     Dates: start: 20150706, end: 20150706
  22. ENDOXAN                            /00021101/ [Suspect]
     Active Substance: CYCLOPHOSPHAMIDE
     Indication: LYMPHOMA
     Dosage: CYCLE 3
     Route: 042
     Dates: start: 20150724, end: 20150724
  23. DOXORUBICINE TEVA [Suspect]
     Active Substance: DOXORUBICIN
     Indication: LYMPHOMA
     Dosage: CYCLE 4
     Route: 042
     Dates: start: 20150819, end: 20150819
  24. MABTHERA [Suspect]
     Active Substance: RITUXIMAB
     Indication: LYMPHOMA
     Dosage: MAINTENANCE TREATMENT
     Route: 058
     Dates: start: 20151005, end: 20151005
  25. ENDOXAN                            /00021101/ [Suspect]
     Active Substance: CYCLOPHOSPHAMIDE
     Indication: LYMPHOMA
     Dosage: CYCLE 5
     Route: 042
     Dates: start: 20150914, end: 20150914

REACTIONS (2)
  - Disease progression [Recovered/Resolved]
  - Atrial flutter [Recovered/Resolved]

NARRATIVE: CASE EVENT DATE: 201505
